FAERS Safety Report 4982038-9 (Version None)
Quarter: 2006Q2

REPORT INFORMATION
  Report Type: 
  Country: None (occurrence: None)
  Receive Date: 20060421
  Receipt Date: 20060410
  Transmission Date: 20061013
  Serious: Yes (Hospitalization)
  Sender: FDA-Public Use
  Company Number: US017324

PATIENT
  Age: 67 Year
  Sex: Male

DRUGS (14)
  1. GABITRIL [Suspect]
     Indication: ANGER
     Dosage: 2 MG QD ORAL
     Route: 048
     Dates: start: 20040920, end: 20040926
  2. GABITRIL [Suspect]
     Indication: DEPRESSION
     Dosage: 2 MG QD ORAL
     Route: 048
     Dates: start: 20040920, end: 20040926
  3. GABITRIL [Suspect]
     Indication: OBSESSIVE-COMPULSIVE DISORDER
     Dosage: 2 MG QD ORAL
     Route: 048
     Dates: start: 20040920, end: 20040926
  4. GABITRIL [Suspect]
     Indication: ANGER
     Dosage: 16 MG QD ORAL
     Route: 048
     Dates: start: 20040927
  5. GABITRIL [Suspect]
     Indication: DEPRESSION
     Dosage: 16 MG QD ORAL
     Route: 048
     Dates: start: 20040927
  6. GABITRIL [Suspect]
     Indication: OBSESSIVE-COMPULSIVE DISORDER
     Dosage: 16 MG QD ORAL
     Route: 048
     Dates: start: 20040927
  7. GABITRIL [Suspect]
     Indication: ANGER
     Dosage: 16 MG QD ORAL
     Dates: end: 20060301
  8. GABITRIL [Suspect]
     Indication: DEPRESSION
     Dosage: 16 MG QD ORAL
     Dates: end: 20060301
  9. GABITRIL [Suspect]
     Indication: OBSESSIVE-COMPULSIVE DISORDER
     Dosage: 16 MG QD ORAL
     Dates: end: 20060301
  10. GABITRIL [Suspect]
     Indication: ANGER
     Dosage: 24 MG QD ORAL
     Route: 048
     Dates: start: 20060301
  11. GABITRIL [Suspect]
     Indication: DEPRESSION
     Dosage: 24 MG QD ORAL
     Route: 048
     Dates: start: 20060301
  12. GABITRIL [Suspect]
     Indication: OBSESSIVE-COMPULSIVE DISORDER
     Dosage: 24 MG QD ORAL
     Route: 048
     Dates: start: 20060301
  13. EFFEXOR [Concomitant]
  14. REMERON [Concomitant]

REACTIONS (4)
  - CONVULSION [None]
  - LOSS OF CONSCIOUSNESS [None]
  - RESTLESSNESS [None]
  - UNRESPONSIVE TO VERBAL STIMULI [None]
